FAERS Safety Report 6097433-7 (Version None)
Quarter: 2009Q1

REPORT INFORMATION
  Report Type: 
  Country: None (occurrence: None)
  Receive Date: 20090225
  Receipt Date: 20090225
  Transmission Date: 20090719
  Serious: Yes (Other)
  Sender: FDA-Public Use
  Company Number: None

PATIENT
  Sex: Male
  Weight: 87.9978 kg

DRUGS (3)
  1. TEMODAR [Suspect]
     Indication: BRAIN NEOPLASM
     Dosage: 140 QD PO
     Route: 048
     Dates: start: 20090127, end: 20090201
  2. PHENOBARBITAL TAB [Suspect]
  3. KEPPRA [Suspect]

REACTIONS (3)
  - CONVULSION [None]
  - FATIGUE [None]
  - VISION BLURRED [None]
